FAERS Safety Report 14847596 (Version 1)
Quarter: 2018Q2

REPORT INFORMATION
  Report Type: Spontaneous
  Country: JP (occurrence: JP)
  Receive Date: 20180504
  Receipt Date: 20180504
  Transmission Date: 20180711
  Serious: Yes (Other)
  Sender: FDA-Public Use
  Company Number: JP-JNJFOC-20180502780

PATIENT
  Age: 78 Year
  Sex: Female

DRUGS (2)
  1. DARZALEX [Suspect]
     Active Substance: DARATUMUMAB
     Indication: PLASMA CELL MYELOMA
     Route: 041
  2. VELCADE [Suspect]
     Active Substance: BORTEZOMIB
     Indication: PLASMA CELL MYELOMA
     Route: 065

REACTIONS (6)
  - Blood pressure decreased [Recovering/Resolving]
  - Tachycardia [Recovering/Resolving]
  - Condition aggravated [Unknown]
  - Disease progression [Unknown]
  - Infusion related reaction [Recovering/Resolving]
  - Pyrexia [Recovering/Resolving]
